FAERS Safety Report 17678886 (Version 3)
Quarter: 2020Q2

REPORT INFORMATION
  Report Type: Spontaneous
  Country: US (occurrence: US)
  Receive Date: 20200417
  Receipt Date: 20200420
  Transmission Date: 20200714
  Serious: Yes (Death, Hospitalization, Other)
  Sender: FDA-Public Use
  Company Number: US-ROCHE-2569850

PATIENT
  Age: 77 Year
  Sex: Male

DRUGS (1)
  1. ESBRIET [Suspect]
     Active Substance: PIRFENIDONE
     Indication: IDIOPATHIC PULMONARY FIBROSIS
     Dosage: DAILY
     Route: 048
     Dates: start: 20200302

REACTIONS (7)
  - Atrial fibrillation [Unknown]
  - Anaemia [Unknown]
  - Respiratory disorder [Unknown]
  - Productive cough [Unknown]
  - Respiratory disorder [Fatal]
  - Idiopathic pulmonary fibrosis [Unknown]
  - Pneumonia [Unknown]

NARRATIVE: CASE EVENT DATE: 20200316
